FAERS Safety Report 9689268 (Version 1)
Quarter: 2013Q4

REPORT INFORMATION
  Report Type: Spontaneous
  Country: GB (occurrence: GB)
  Receive Date: 20131114
  Receipt Date: 20131114
  Transmission Date: 20140711
  Serious: Yes (Other)
  Sender: FDA-Public Use
  Company Number: GB-TEVA-443546ISR

PATIENT
  Age: 75 Year
  Sex: Male

DRUGS (2)
  1. BISOPROLOL [Suspect]
     Indication: HYPERTENSION
     Dosage: 5 MILLIGRAM DAILY; EVERY NIGHT
     Route: 048
     Dates: start: 20131020
  2. VALERIAN [Suspect]
     Indication: INSOMNIA
     Route: 048
     Dates: start: 20131020

REACTIONS (3)
  - Dyspnoea [Recovered/Resolved]
  - Anxiety [Recovered/Resolved]
  - Drug interaction [Unknown]
